FAERS Safety Report 4883740-X (Version None)
Quarter: 2006Q1

REPORT INFORMATION
  Report Type: 
  Country: None (occurrence: None)
  Receive Date: 20060118
  Receipt Date: 20060106
  Transmission Date: 20060701
  Serious: Yes (Hospitalization)
  Sender: FDA-Public Use
  Company Number: FR-ROCHE-431344

PATIENT
  Age: 40 Year
  Sex: Female

DRUGS (1)
  1. ROCEPHIN [Suspect]
     Route: 042
     Dates: start: 20051019

REACTIONS (4)
  - HYPERSENSITIVITY [None]
  - PRURITUS [None]
  - RASH PAPULAR [None]
  - URTICARIA [None]
